FAERS Safety Report 5200544-9 (Version None)
Quarter: 2006Q4

REPORT INFORMATION
  Report Type: 
  Country: None (occurrence: None)
  Receive Date: 20060929
  Receipt Date: 20051221
  Transmission Date: 20070319
  Serious: Yes (Other)
  Sender: FDA-Public Use
  Company Number: US-JNJFOC-20051205465

PATIENT
  Age: 40 Year
  Sex: Female
  Weight: 66.6788 kg

DRUGS (2)
  1. ORTHO NOVUM 0.5/50 21 TAB [Suspect]
     Indication: CONTRACEPTION
     Dosage: 1 DOSE (S) , 1 IN 1 DAY, ORAL
     Route: 048
  2. ORTHO NOVUM 7/777 ( EITHINYLESTRADIOL/NORETHINDRONE) TABLETS [Suspect]
     Indication: CONTRACEPTION
     Dosage: 1 DOSE (S) , 1 IN 1 DAY, ORAL
     Route: 048

REACTIONS (2)
  - DRUG EXPOSURE DURING PREGNANCY [None]
  - PREGNANCY ON ORAL CONTRACEPTIVE [None]
